FAERS Safety Report 25377707 (Version 1)
Quarter: 2025Q2

REPORT INFORMATION
  Report Type: Spontaneous
  Country: BR (occurrence: BR)
  Receive Date: 20250530
  Receipt Date: 20250530
  Transmission Date: 20250716
  Serious: Yes (Other)
  Sender: NOVO NORDISK
  Company Number: BR-NOVOPROD-1439906

PATIENT
  Age: 984 Month
  Sex: Female

DRUGS (1)
  1. XULTOPHY 100/3.6 [Suspect]
     Active Substance: INSULIN DEGLUDEC\LIRAGLUTIDE
     Indication: Product used for unknown indication
     Dosage: 15 IU, QD

REACTIONS (4)
  - Neoplasm malignant [Unknown]
  - Hypoacusis [Unknown]
  - Fall [Unknown]
  - Product availability issue [Unknown]
